FAERS Safety Report 6044816-7 (Version None)
Quarter: 2009Q1

REPORT INFORMATION
  Report Type: 
  Country: None (occurrence: None)
  Receive Date: 20090120
  Receipt Date: 20090112
  Transmission Date: 20090719
  Serious: Yes (Hospitalization, Other)
  Sender: FDA-Public Use
  Company Number: MX-GILEAD-2008-0017236

PATIENT
  Age: 31 Year
  Sex: Female

DRUGS (6)
  1. TRUVADA [Suspect]
     Indication: HIV INFECTION
     Route: 048
     Dates: start: 20070330, end: 20070620
  2. PREZISTA [Suspect]
     Indication: HIV INFECTION
     Dosage: 1200 MG PER DAY
     Route: 048
     Dates: start: 20070330, end: 20070620
  3. COMBIVIR [Suspect]
     Indication: HIV INFECTION
     Dosage: 2 TABLETS PER DAY
     Route: 048
     Dates: start: 20070621
  4. VIRACEPT [Suspect]
     Indication: HIV INFECTION
     Dosage: 2500 MG PER DAY
     Route: 048
     Dates: start: 20070621, end: 20070913
  5. NORVIR [Suspect]
     Indication: HIV INFECTION
     Dosage: 200 MG PER DAY
     Route: 048
     Dates: start: 20070913
  6. INVIRASE [Suspect]
     Indication: HIV INFECTION
     Route: 048
     Dates: start: 20070913

REACTIONS (2)
  - PRE-ECLAMPSIA [None]
  - PREGNANCY [None]
